FAERS Safety Report 15274249 (Version 3)
Quarter: 2018Q3

REPORT INFORMATION
  Report Type: Report from Study
  Country: DE (occurrence: DE)
  Receive Date: 20180814
  Receipt Date: 20180914
  Transmission Date: 20181010
  Serious: Yes (Death, Congenital Anomaly, Other)
  Sender: FDA-Public Use
  Company Number: DE-AUROBINDO-AUR-APL-2018-036916

PATIENT

DRUGS (5)
  1. DIGITOXIN [Suspect]
     Active Substance: DIGITOXIN
     Indication: PRODUCT USED FOR UNKNOWN INDICATION
     Dosage: EXPOSURE 0?12 WEEKS
     Route: 064
  2. ACETAZOLAMIDE. [Suspect]
     Active Substance: ACETAZOLAMIDE
     Indication: PRODUCT USED FOR UNKNOWN INDICATION
     Dosage: EXPOSURE 0?17 WEEKS
     Route: 064
  3. NADOLOL. [Suspect]
     Active Substance: NADOLOL
     Indication: PRODUCT USED FOR UNKNOWN INDICATION
     Dosage: EXPOSURE 0?12 WEEKS
     Route: 064
  4. CAPTOPRIL TABLETS [Suspect]
     Active Substance: CAPTOPRIL
     Indication: HYPERTENSION
     Dosage: 50 MILLIGRAM UNK, (EXPOSURE: 0?12 WEEKS)
     Route: 064
  5. AMIODARONE [Suspect]
     Active Substance: AMIODARONE
     Indication: PRODUCT USED FOR UNKNOWN INDICATION
     Dosage: UNK
     Route: 064

REACTIONS (3)
  - Potter^s syndrome [Fatal]
  - Death [Fatal]
  - Foetal exposure during pregnancy [Fatal]
